FAERS Safety Report 25530138 (Version 2)
Quarter: 2025Q3

REPORT INFORMATION
  Report Type: Spontaneous
  Country: KR (occurrence: KR)
  Receive Date: 20250708
  Receipt Date: 20250709
  Transmission Date: 20251021
  Serious: Yes (Other)
  Sender: ELI LILLY AND COMPANY
  Company Number: KR-ELI_LILLY_AND_COMPANY-KR202506026844

PATIENT
  Sex: Female

DRUGS (44)
  1. JAYPIRCA [Suspect]
     Active Substance: PIRTOBRUTINIB
     Indication: Mantle cell lymphoma refractory
     Dosage: 100 MG, BID
     Route: 048
     Dates: start: 202506
  2. MOPRIDE [MOSAPRIDE CITRATE] [Concomitant]
     Indication: Product used for unknown indication
     Dosage: 5 MG, DAILY
     Dates: start: 20250508, end: 20250518
  3. BENZYDAMINE HYDROCHLORIDE [Concomitant]
     Active Substance: BENZYDAMINE HYDROCHLORIDE
     Indication: Product used for unknown indication
     Dates: start: 20250508, end: 20250511
  4. ULTRACET [Concomitant]
     Active Substance: ACETAMINOPHEN\TRAMADOL HYDROCHLORIDE
     Indication: Product used for unknown indication
     Dates: start: 20250508, end: 20250603
  5. GREEN HEXIDINE [Concomitant]
     Indication: Product used for unknown indication
     Dates: start: 20250508, end: 20250527
  6. GREEN POVIDONE BRUSH [Concomitant]
     Indication: Product used for unknown indication
     Dates: start: 20250508, end: 20250615
  7. VENCLEXTA [Concomitant]
     Active Substance: VENETOCLAX
     Indication: Product used for unknown indication
     Dates: start: 20250509, end: 20250511
  8. VENCLEXTA [Concomitant]
     Active Substance: VENETOCLAX
     Dates: start: 20250511, end: 20250513
  9. VENCLEXTA [Concomitant]
     Active Substance: VENETOCLAX
     Dates: start: 20250514, end: 20250522
  10. VENCLEXTA [Concomitant]
     Active Substance: VENETOCLAX
     Dates: start: 20250523, end: 20250601
  11. LEVOFLOXACIN [Concomitant]
     Active Substance: LEVOFLOXACIN
     Indication: Product used for unknown indication
  12. ALLOPURINOL [Concomitant]
     Active Substance: ALLOPURINOL
     Indication: Product used for unknown indication
     Dates: start: 20250509, end: 20250612
  13. BARACLUDE [Concomitant]
     Active Substance: ENTECAVIR
     Indication: Product used for unknown indication
     Dates: start: 20250509, end: 20250602
  14. MAGNESIUM OXIDE [Concomitant]
     Active Substance: MAGNESIUM OXIDE
     Indication: Product used for unknown indication
     Dates: start: 20250510, end: 20250602
  15. EPECTRA [Concomitant]
     Indication: Product used for unknown indication
     Dates: start: 20250512, end: 20250522
  16. BEAROBAN [Concomitant]
     Indication: Product used for unknown indication
     Dates: start: 20250516, end: 20250611
  17. FENOFIBRATE [Concomitant]
     Active Substance: FENOFIBRATE
     Indication: Product used for unknown indication
     Dates: start: 20250517, end: 20250604
  18. EPINEPHRINE [Concomitant]
     Active Substance: EPINEPHRINE
     Indication: Product used for unknown indication
     Dates: start: 20250519, end: 20250608
  19. YUCOZOLE [Concomitant]
     Indication: Product used for unknown indication
     Dates: start: 20250523, end: 20250602
  20. SANCUSO [Concomitant]
     Active Substance: GRANISETRON
     Indication: Product used for unknown indication
     Dates: start: 20250523, end: 20250613
  21. CANDEMORE [Concomitant]
     Indication: Product used for unknown indication
     Dates: start: 20250529, end: 20250619
  22. NALOXONE HYDROCHLORIDE\OXYCODONE HYDROCHLORIDE [Concomitant]
     Active Substance: NALOXONE HYDROCHLORIDE\OXYCODONE HYDROCHLORIDE
     Indication: Product used for unknown indication
     Dates: start: 20250603, end: 20250604
  23. NALOXONE HYDROCHLORIDE\OXYCODONE HYDROCHLORIDE [Concomitant]
     Active Substance: NALOXONE HYDROCHLORIDE\OXYCODONE HYDROCHLORIDE
     Dates: start: 20250603, end: 20250604
  24. FENTADUR [Concomitant]
     Indication: Product used for unknown indication
     Dates: start: 20250604, end: 20250610
  25. GLUCOPHAGE [Concomitant]
     Active Substance: METFORMIN HYDROCHLORIDE
     Indication: Product used for unknown indication
     Dates: start: 20250605, end: 20250618
  26. FRASINYL [Concomitant]
     Indication: Product used for unknown indication
     Dates: start: 20250611, end: 20250616
  27. FRASINYL [Concomitant]
     Dates: start: 20250618
  28. SEROQUEL [Concomitant]
     Active Substance: QUETIAPINE FUMARATE
     Indication: Product used for unknown indication
     Dates: start: 20250611, end: 20250618
  29. FENTANYL [Concomitant]
     Active Substance: FENTANYL
     Indication: Product used for unknown indication
     Dates: start: 20250613, end: 20250616
  30. MOPRIDE [MOSAPRIDE CITRATE] [Concomitant]
     Indication: Product used for unknown indication
     Dates: start: 20250618
  31. ZENOL COOL [Concomitant]
     Active Substance: METHYL SALICYLATE
     Indication: Product used for unknown indication
     Dates: start: 20250618
  32. DEXTROSE + NAK [Concomitant]
     Indication: Product used for unknown indication
     Dates: start: 20250513, end: 20250602
  33. MECCOL [Concomitant]
     Indication: Product used for unknown indication
     Dates: start: 20250514, end: 20250618
  34. SMOFLIPID [Concomitant]
     Active Substance: FISH OIL\MEDIUM-CHAIN TRIGLYCERIDES\OLIVE OIL\SOYBEAN OIL
     Indication: Product used for unknown indication
     Dates: start: 20250516, end: 20250531
  35. FRAVASOL [Concomitant]
     Indication: Product used for unknown indication
     Dates: start: 20250529, end: 20250607
  36. METHYSOL [Concomitant]
     Indication: Product used for unknown indication
     Dates: start: 20250529, end: 20250607
  37. OLIMEL E [Concomitant]
     Active Substance: AMINO ACIDS\DEXTROSE\ELECTROLYTES NOS\SOYBEAN OIL
     Indication: Product used for unknown indication
  38. MORPHINE SULFATE [Concomitant]
     Active Substance: MORPHINE SULFATE
     Indication: Product used for unknown indication
  39. PROPACETAMOL HYDROCHLORIDE [Concomitant]
     Active Substance: PROPACETAMOL HYDROCHLORIDE
     Indication: Product used for unknown indication
     Dates: start: 20250604
  40. BOTROPASE [BATROXOBIN] [Concomitant]
     Indication: Product used for unknown indication
     Dates: start: 20250608
  41. METRONIDAZOLE [Concomitant]
     Active Substance: METRONIDAZOLE
     Indication: Product used for unknown indication
  42. LASIX [Concomitant]
     Active Substance: FUROSEMIDE
     Indication: Product used for unknown indication
     Dates: start: 20250614
  43. FILGRASTIM [Concomitant]
     Active Substance: FILGRASTIM
     Indication: Product used for unknown indication
     Dates: start: 20250616
  44. KCL [Concomitant]
     Active Substance: POTASSIUM CHLORIDE
     Indication: Product used for unknown indication
     Dates: start: 20250617, end: 20250618

REACTIONS (1)
  - General physical health deterioration [Not Recovered/Not Resolved]
